FAERS Safety Report 22043381 (Version 1)
Quarter: 2023Q1

REPORT INFORMATION
  Report Type: Spontaneous
  Country: US (occurrence: US)
  Receive Date: 20230228
  Receipt Date: 20230228
  Transmission Date: 20230418
  Serious: No
  Sender: FDA-Public Use
  Company Number: US-HETERO-HET2023US00411

PATIENT
  Sex: Female

DRUGS (1)
  1. LOSARTAN [Suspect]
     Active Substance: LOSARTAN
     Indication: Hypertension
     Dosage: 100 MG, QD
     Route: 065

REACTIONS (1)
  - Platelet count decreased [Unknown]
